FAERS Safety Report 8922330 (Version 1)
Quarter: 2012Q4

REPORT INFORMATION
  Report Type: 
  Country: US (occurrence: US)
  Receive Date: 20121123
  Receipt Date: 20121123
  Transmission Date: 20130627
  Serious: Yes (Other)
  Sender: FDA-Public Use
  Company Number: US-JNJFOC-20121109974

PATIENT
  Age: 65 Year
  Sex: Female
  Weight: 58.06 kg

DRUGS (1)
  1. TYLENOL PM [Suspect]
     Indication: SLEEP DISORDER THERAPY
     Route: 048

REACTIONS (3)
  - Dependence [Unknown]
  - Drug tolerance [Unknown]
  - Intentional drug misuse [Unknown]
